FAERS Safety Report 22589329 (Version 1)
Quarter: 2023Q2

REPORT INFORMATION
  Report Type: Spontaneous
  Country: FR (occurrence: FR)
  Receive Date: 20230612
  Receipt Date: 20230612
  Transmission Date: 20230721
  Serious: Yes (Hospitalization)
  Sender: FDA-Public Use
  Company Number: None

PATIENT
  Age: 66 Year
  Sex: Male
  Weight: 88 kg

DRUGS (6)
  1. ONDANSETRON [Suspect]
     Active Substance: ONDANSETRON
     Indication: Analgesic intervention supportive therapy
     Dosage: ROA-20045000
     Route: 042
     Dates: start: 20230426, end: 20230426
  2. ACETAMINOPHEN [Suspect]
     Active Substance: ACETAMINOPHEN
     Indication: Analgesic intervention supportive therapy
     Dosage: ROA-20045000
     Route: 042
     Dates: start: 20230426, end: 20230426
  3. KETOPROFEN [Suspect]
     Active Substance: KETOPROFEN
     Indication: Analgesic intervention supportive therapy
     Dosage: ROA-20045000
     Route: 042
     Dates: start: 20230426, end: 20230426
  4. CEFAZOLIN [Suspect]
     Active Substance: CEFAZOLIN
     Indication: Antibiotic prophylaxis
     Dosage: ROA-20045000
     Route: 042
     Dates: start: 20230426, end: 20230426
  5. BUPIVACAINE HYDROCHLORIDE [Suspect]
     Active Substance: BUPIVACAINE HYDROCHLORIDE
     Indication: Analgesic intervention supportive therapy
     Dosage: ROA-20042000
     Route: 037
     Dates: start: 20230426, end: 20230426
  6. ACUPAN [Suspect]
     Active Substance: NEFOPAM HYDROCHLORIDE
     Indication: Analgesic intervention supportive therapy
     Dosage: ROA-20045000
     Route: 042
     Dates: start: 20230426, end: 20230426

REACTIONS (3)
  - Anaphylactic reaction [Recovered/Resolved]
  - Hypotension [Recovered/Resolved]
  - Rash [Recovered/Resolved]

NARRATIVE: CASE EVENT DATE: 20230426
